FAERS Safety Report 8816830 (Version 1)
Quarter: 2012Q4

REPORT INFORMATION
  Report Type: Spontaneous
  Country: US (occurrence: None)
  Receive Date: 20121001
  Receipt Date: 20121001
  Transmission Date: 20130627
  Serious: Yes (Hospitalization)
  Sender: FDA-Public Use
  Company Number: DSA_59699_2012

PATIENT
  Age: 59 Year
  Sex: Female

DRUGS (13)
  1. LORAZEPAM [Suspect]
     Indication: DEPRESSION
     Dosage: 4 tablets, (DF)
  2. LORAZEPAM [Suspect]
     Indication: ANXIETY
     Dosage: 4 tablets, (DF)
  3. LORAZEPAM [Suspect]
     Indication: DEPRESSION
  4. LORAZEPAM [Suspect]
     Indication: ANXIETY
  5. IMIPRAMINE [Concomitant]
  6. CITALOPRAM [Concomitant]
  7. TRIFLUOPERAZINE [Concomitant]
  8. DIGOXIN [Concomitant]
  9. FUROSEMIDE [Concomitant]
  10. MULTIVITAMIN [Concomitant]
  11. NIACIN [Concomitant]
  12. POTASSIUM CHLORIDE [Concomitant]
  13. METFORMIN [Concomitant]

REACTIONS (10)
  - Aortic stenosis [None]
  - Catatonia [None]
  - Post procedural complication [None]
  - Drug withdrawal syndrome [None]
  - Pyrexia [None]
  - Tachycardia [None]
  - Disorientation [None]
  - Mutism [None]
  - Immobile [None]
  - Anxiety [None]
